FAERS Safety Report 21215984 (Version 2)
Quarter: 2022Q4

REPORT INFORMATION
  Report Type: Spontaneous
  Country: US (occurrence: US)
  Receive Date: 20220816
  Receipt Date: 20221107
  Transmission Date: 20230113
  Serious: No
  Sender: FDA-Public Use
  Company Number: US-BIOGEN-2022BI01146793

PATIENT
  Sex: Female

DRUGS (1)
  1. VUMERITY [Suspect]
     Active Substance: DIROXIMEL FUMARATE
     Indication: Multiple sclerosis
     Route: 050
     Dates: start: 20211029

REACTIONS (5)
  - Product physical issue [Unknown]
  - Multiple sclerosis relapse [Unknown]
  - COVID-19 [Unknown]
  - Pneumonia [Unknown]
  - Memory impairment [Unknown]
